FAERS Safety Report 26022638 (Version 1)
Quarter: 2025Q4

REPORT INFORMATION
  Report Type: Spontaneous
  Country: US (occurrence: None)
  Receive Date: 20251110
  Receipt Date: 20251110
  Transmission Date: 20260117
  Serious: Yes (Hospitalization)
  Sender: FDA-CTU
  Company Number: None

PATIENT
  Sex: Female

DRUGS (11)
  1. REVLIMID [Suspect]
     Active Substance: LENALIDOMIDE
     Indication: Plasma cell myeloma
     Dosage: ?TAKE 1 CAPSULE BY MOUTH DAILY, 3 DAYS ON AND 4 DAYS OFF EACH WEEK FOR 28 DAYS
     Route: 048
     Dates: start: 20250815
  2. ACYCLOVIR [Concomitant]
     Active Substance: ACYCLOVIR
  3. ALBUTEROL AER HFA [Concomitant]
  4. ASPIRIN [Concomitant]
     Active Substance: ASPIRIN
  5. B-1 TAB 100MG [Concomitant]
  6. FLUTIC/SALME AER 250/50 [Concomitant]
  7. FOLBIC TAB [Concomitant]
  8. KP VITAMIN D [Concomitant]
  9. LEVOFLOXACIN TAB 500MG [Concomitant]
  10. LOSARTAN POTASSIUM [Concomitant]
     Active Substance: LOSARTAN POTASSIUM
  11. OMEPRAZOLE [Concomitant]
     Active Substance: OMEPRAZOLE

REACTIONS (7)
  - Viral infection [None]
  - Dizziness [None]
  - Pancytopenia [None]
  - Tinnitus [None]
  - Hypogammaglobulinaemia [None]
  - Muscle spasms [None]
  - Joint swelling [None]
